FAERS Safety Report 8454025-X (Version None)
Quarter: 2012Q2

REPORT INFORMATION
  Report Type: 
  Country: None (occurrence: None)
  Receive Date: 20120323
  Receipt Date: 20110818
  Transmission Date: 20120825
  Serious: Yes (Other)
  Sender: FDA-Public Use
  Company Number: 163-21880-11082421

PATIENT
  Age: 79 Year
  Sex: Female

DRUGS (3)
  1. LENALIDOMIDE [Suspect]
     Indication: MULTIPLE MYELOMA
     Dosage: 10 MG, DAILY FOR 21 DAYS EVERY 28, PO
     Route: 048
     Dates: start: 20110301, end: 20110401
  2. ZOCOR [Concomitant]
  3. TIMOPTIC [Concomitant]

REACTIONS (3)
  - DISEASE PROGRESSION [None]
  - BLOOD IMMUNOGLOBULIN G INCREASED [None]
  - NEUTROPENIA [None]
